FAERS Safety Report 18202460 (Version 1)
Quarter: 2020Q3

REPORT INFORMATION
  Report Type: Spontaneous
  Country: US (occurrence: US)
  Receive Date: 20200827
  Receipt Date: 20200827
  Transmission Date: 20201103
  Serious: No
  Sender: FDA-Public Use
  Company Number: None

PATIENT
  Age: 77 Year
  Sex: Female

DRUGS (1)
  1. CITALOPRAM HYDROBROMIDE. [Suspect]
     Active Substance: CITALOPRAM HYDROBROMIDE

REACTIONS (6)
  - Decreased appetite [None]
  - Acute kidney injury [None]
  - Product dispensing issue [None]
  - Dizziness [None]
  - Extra dose administered [None]
  - Hypotension [None]
